FAERS Safety Report 10343034 (Version 2)
Quarter: 2015Q1

REPORT INFORMATION
  Report Type: Report from Study
  Country: US (occurrence: US)
  Receive Date: 20140725
  Receipt Date: 20150115
  Transmission Date: 20150720
  Serious: Yes (Death, Life-Threatening)
  Sender: FDA-Public Use
  Company Number: PHHY2014US091328

PATIENT
  Age: 52 Year
  Sex: Female
  Weight: 87.1 kg

DRUGS (2)
  1. GILENYA [Suspect]
     Active Substance: FINGOLIMOD HYDROCHLORIDE
     Indication: MULTIPLE SCLEROSIS
     Dosage: 0.5 MG, DAILY
     Route: 048
     Dates: start: 20120509, end: 20140720
  2. ENALAPRIL [Concomitant]
     Active Substance: ENALAPRIL
     Indication: HYPERTENSION
     Dosage: UNK UKN,10/25 QD

REACTIONS (3)
  - Fibrosarcoma [Fatal]
  - Flank pain [Fatal]
  - Bone lesion [Fatal]

NARRATIVE: CASE EVENT DATE: 20140506
